FAERS Safety Report 23741014 (Version 1)
Quarter: 2024Q2

REPORT INFORMATION
  Report Type: Spontaneous
  Country: TH (occurrence: TH)
  Receive Date: 20240415
  Receipt Date: 20240415
  Transmission Date: 20240715
  Serious: Yes (Death, Other)
  Sender: FDA-Public Use
  Company Number: TH-009507513-2404THA006780

PATIENT
  Age: 30 Year
  Sex: Female

DRUGS (1)
  1. INVANZ [Suspect]
     Active Substance: ERTAPENEM SODIUM
     Dosage: 1 GRAM
     Route: 042
     Dates: start: 20230328, end: 20230330

REACTIONS (1)
  - Dermatitis exfoliative [Fatal]

NARRATIVE: CASE EVENT DATE: 20230405
